FAERS Safety Report 5054838-0 (Version None)
Quarter: 2006Q3

REPORT INFORMATION
  Report Type: 
  Country: None (occurrence: None)
  Receive Date: 20060717
  Receipt Date: 20060705
  Transmission Date: 20061208
  Serious: Yes (Other)
  Sender: FDA-Public Use
  Company Number: 2006083498

PATIENT
  Sex: Male
  Weight: 72.1219 kg

DRUGS (5)
  1. LIPITOR [Suspect]
     Indication: BLOOD CHOLESTEROL INCREASED
     Dosage: 10 MG (10 MG, 1 IN 1 D)
     Dates: end: 20060601
  2. PROSCAR [Concomitant]
  3. ALL OTHER THERAPEUTIC PRODUCTS [Concomitant]
  4. CALCIUM GLUCONATE [Concomitant]
  5. ASPIRIN [Concomitant]

REACTIONS (7)
  - ARTERIAL STENOSIS [None]
  - ASTHENIA [None]
  - MOTION SICKNESS [None]
  - MUSCLE DISORDER [None]
  - PAIN IN EXTREMITY [None]
  - PROSTATIC DISORDER [None]
  - RED BLOOD CELL SEDIMENTATION RATE INCREASED [None]
